FAERS Safety Report 24054048 (Version 5)
Quarter: 2025Q3

REPORT INFORMATION
  Report Type: Spontaneous
  Country: EU (occurrence: EU)
  Receive Date: 20240705
  Receipt Date: 20250903
  Transmission Date: 20251021
  Serious: Yes (Death, Other)
  Sender: SANOFI AVENTIS
  Company Number: EU-OPELLA-2024OHG021638

PATIENT

DRUGS (18)
  1. ACETAMINOPHEN [Suspect]
     Active Substance: ACETAMINOPHEN
     Indication: Product used for unknown indication
  2. LEVOCETIRIZINE DIHYDROCHLORIDE [Suspect]
     Active Substance: LEVOCETIRIZINE DIHYDROCHLORIDE
     Indication: Product used for unknown indication
  3. LEVOCETIRIZINE DIHYDROCHLORIDE [Suspect]
     Active Substance: LEVOCETIRIZINE DIHYDROCHLORIDE
  4. TAMSULOSIN HYDROCHLORIDE [Suspect]
     Active Substance: TAMSULOSIN HYDROCHLORIDE
     Indication: Product used for unknown indication
  5. TAMSULOSIN HYDROCHLORIDE [Suspect]
     Active Substance: TAMSULOSIN HYDROCHLORIDE
     Route: 065
  6. ASPIRIN [Suspect]
     Active Substance: ASPIRIN
     Indication: Product used for unknown indication
  7. SERTRALINE HYDROCHLORIDE [Suspect]
     Active Substance: SERTRALINE HYDROCHLORIDE
  8. ENOXAPARIN SODIUM [Suspect]
     Active Substance: ENOXAPARIN SODIUM
  9. VENLAFAXINE HYDROCHLORIDE [Suspect]
     Active Substance: VENLAFAXINE HYDROCHLORIDE
  10. DONEPEZIL HYDROCHLORIDE [Suspect]
     Active Substance: DONEPEZIL HYDROCHLORIDE
  11. DILTIAZEM HYDROCHLORIDE [Suspect]
     Active Substance: DILTIAZEM HYDROCHLORIDE
  12. BISOPROLOL FUMARATE [Suspect]
     Active Substance: BISOPROLOL FUMARATE
  13. MIRTAZAPINE [Suspect]
     Active Substance: MIRTAZAPINE
  14. EZETIMIBE [Suspect]
     Active Substance: EZETIMIBE
  15. ESCITALOPRAM OXALATE [Suspect]
     Active Substance: ESCITALOPRAM OXALATE
  16. CHOLECALCIFEROL [Suspect]
     Active Substance: CHOLECALCIFEROL
  17. POTASSIUM IODIDE [Suspect]
     Active Substance: POTASSIUM IODIDE
  18. CALCIUM CARBONATE [Suspect]
     Active Substance: CALCIUM CARBONATE

REACTIONS (28)
  - Tinnitus [Fatal]
  - Haemorrhagic stroke [Fatal]
  - Dyspnoea [Fatal]
  - Ocular discomfort [Fatal]
  - Arthralgia [Fatal]
  - Altered state of consciousness [Fatal]
  - Haematemesis [Fatal]
  - Presyncope [Fatal]
  - Insomnia [Fatal]
  - Haematuria [Fatal]
  - Head discomfort [Fatal]
  - Photophobia [Fatal]
  - Syncope [Fatal]
  - Chills [Fatal]
  - Coma [Fatal]
  - Blood pressure increased [Fatal]
  - Somnolence [Fatal]
  - Vision blurred [Fatal]
  - Amaurosis fugax [Fatal]
  - Sepsis [Fatal]
  - Cardio-respiratory arrest [Fatal]
  - Ascites [Fatal]
  - Tachycardia [Fatal]
  - Myalgia [Fatal]
  - Diplopia [Fatal]
  - Blindness [Fatal]
  - Generalised oedema [Fatal]
  - Drug interaction [Fatal]
